FAERS Safety Report 9355032 (Version 1)
Quarter: 2013Q2

REPORT INFORMATION
  Report Type: Spontaneous
  Country: US (occurrence: None)
  Receive Date: 20130618
  Receipt Date: 20130618
  Transmission Date: 20140414
  Serious: Yes (Life-Threatening, Disabling)
  Sender: FDA-Public Use
  Company Number: None

PATIENT
  Age: 60 Year
  Sex: Female
  Weight: 61.24 kg

DRUGS (26)
  1. PROLIA [Suspect]
     Indication: OSTEOPOROSIS
     Dosage: ONE TIME  INJECTION
     Dates: start: 20120913, end: 20120913
  2. PROTONIX [Concomitant]
  3. TRAZODONE [Concomitant]
  4. PRISTIQ [Concomitant]
  5. KLONOPIN [Concomitant]
  6. KLONOPIN [Concomitant]
  7. LEVOTHYROXIN [Concomitant]
  8. NAMEDA [Concomitant]
  9. BACLOFEN [Concomitant]
  10. BOTOX [Concomitant]
  11. ZOFRAN [Concomitant]
  12. LIDOCAINE [Concomitant]
  13. ESGIC [Concomitant]
  14. MAXALT [Concomitant]
  15. COMBI-PATCH [Concomitant]
  16. VALTREX [Concomitant]
  17. BENEDRYL [Concomitant]
  18. PETADOLEX [Concomitant]
  19. COQ10 [Concomitant]
  20. MAGNESIUM [Concomitant]
  21. FOLTZ [Concomitant]
  22. MULTI VITAMINS [Concomitant]
  23. VITAMIN D [Concomitant]
  24. ASPIRIN [Concomitant]
  25. MIRALAX [Concomitant]
  26. BENEFIBER [Concomitant]

REACTIONS (11)
  - Cerebrovascular accident [None]
  - Dermatitis [None]
  - Blood parathyroid hormone increased [None]
  - Sleep apnoea syndrome [None]
  - Oxygen saturation decreased [None]
  - Contusion [None]
  - Bone pain [None]
  - Rash pruritic [None]
  - Rosacea [None]
  - Skin exfoliation [None]
  - Application site rash [None]
